FAERS Safety Report 6488771-4 (Version None)
Quarter: 2009Q4

REPORT INFORMATION
  Report Type: 
  Country: None (occurrence: None)
  Receive Date: 20091210
  Receipt Date: 20091130
  Transmission Date: 20100525
  Serious: Yes (Hospitalization)
  Sender: FDA-Public Use
  Company Number: PHHY2009ES17088

PATIENT
  Age: 84 Year
  Sex: Female

DRUGS (3)
  1. LIPOSIT PROLIB [Suspect]
     Indication: DYSLIPIDAEMIA
     Dosage: 80MG PER DAY
     Route: 048
     Dates: start: 20080101, end: 20090219
  2. EUTIROX [Concomitant]
     Dosage: 75 MG, UNK
  3. OMEPRAZOLE [Concomitant]
     Dosage: 20 MG, UNK

REACTIONS (8)
  - ASTHENIA [None]
  - AUTOIMMUNE HEPATITIS [None]
  - FLUID RETENTION [None]
  - HAEMOCHROMATOSIS [None]
  - HEPATIC CIRRHOSIS [None]
  - LIVER DISORDER [None]
  - RENAL IMPAIRMENT [None]
  - RHABDOMYOLYSIS [None]
